FAERS Safety Report 8227258-5 (Version None)
Quarter: 2012Q1

REPORT INFORMATION
  Report Type: 
  Country: None (occurrence: None)
  Receive Date: 20120322
  Receipt Date: 20120308
  Transmission Date: 20120608
  Serious: Yes (Hospitalization, Disabling, Other)
  Sender: FDA-Public Use
  Company Number: PHHY2012JP010498

PATIENT
  Sex: Male
  Weight: 8 kg

DRUGS (13)
  1. ROCURONIUM BROMIDE [Concomitant]
     Indication: ANAESTHESIA PROCEDURE
     Dosage: 22.5 MG, UNK
     Route: 042
     Dates: start: 20110406, end: 20110406
  2. THIOPENTAL SODIUM [Concomitant]
     Route: 042
     Dates: start: 20110409
  3. VOLTAREN [Suspect]
     Dosage: 6.25 MG DAILY
     Route: 054
  4. CEFOTIAM HYDROCHLORIDE [Concomitant]
     Indication: ANAESTHESIA PROCEDURE
     Dosage: 0.8 G, UNK
     Route: 042
     Dates: start: 20110406, end: 20110406
  5. THIOPENTAL SODIUM [Concomitant]
     Indication: ANAESTHESIA PROCEDURE
     Dosage: 35 MG, UNK
     Route: 042
     Dates: start: 20110406, end: 20110406
  6. ACETAMINOPHEN [Concomitant]
     Indication: PAIN
     Dosage: 150 MG, UNK
     Route: 054
     Dates: start: 20110406, end: 20110406
  7. SUGAMMADEX SODIUM [Concomitant]
     Indication: ANAESTHESIA PROCEDURE
     Dosage: 30 MG, ONCE/SINGLE
     Route: 042
     Dates: start: 20110406, end: 20110406
  8. VOLTAREN [Suspect]
     Indication: PROCEDURAL PAIN
     Dosage: 6.25 MG, BID
     Route: 054
     Dates: start: 20110406, end: 20110407
  9. FENTANYL [Concomitant]
     Indication: ANAESTHESIA PROCEDURE
     Dosage: 0.3 MG, ONCE/SINGLE
     Route: 042
     Dates: start: 20110406, end: 20110406
  10. FENTANYL [Concomitant]
     Dosage: 0.2 MG, AT FIVE TIMES
     Dates: start: 20110406, end: 20110406
  11. ATROPINE SULFATE [Concomitant]
     Indication: ANAESTHESIA PROCEDURE
     Dosage: 0.1 MG, UNK
     Route: 042
     Dates: start: 20110406, end: 20110406
  12. SEVOFLURANE [Suspect]
     Indication: ANAESTHESIA PROCEDURE
     Dosage: 309.6 ML, UNK
     Dates: start: 20110406, end: 20110406
  13. ROPIVACAINE HYDROCHLORIDE [Concomitant]
     Indication: ANAESTHESIA PROCEDURE
     Dosage: 25 ML, UNK
     Route: 008
     Dates: start: 20110406, end: 20110406

REACTIONS (13)
  - INFANTILE SPASMS [None]
  - REYE'S SYNDROME [None]
  - ENCEPHALOPATHY [None]
  - HEPATIC STEATOSIS [None]
  - DEVELOPMENTAL DELAY [None]
  - ALTERED STATE OF CONSCIOUSNESS [None]
  - CONVULSION [None]
  - BLOOD POTASSIUM INCREASED [None]
  - SUBDURAL HAEMATOMA [None]
  - BLOOD CREATININE DECREASED [None]
  - HAEMOGLOBIN DECREASED [None]
  - WHITE BLOOD CELL COUNT INCREASED [None]
  - BODY TEMPERATURE DECREASED [None]
